FAERS Safety Report 6540569-4 (Version None)
Quarter: 2010Q1

REPORT INFORMATION
  Report Type: 
  Country: None (occurrence: None)
  Receive Date: 20100113
  Receipt Date: 20091230
  Transmission Date: 20100710
  Serious: Yes (Life-Threatening)
  Sender: FDA-Public Use
  Company Number: 2009AL003880

PATIENT
  Age: 21 Year
  Sex: Male

DRUGS (3)
  1. FEVERALL [Suspect]
     Indication: PREMEDICATION
     Dosage: 1 GM
  2. FABRAZYME [Concomitant]
  3. PIRITON [Concomitant]

REACTIONS (2)
  - ANAPHYLACTIC REACTION [None]
  - INFUSION RELATED REACTION [None]
